FAERS Safety Report 11805654 (Version 1)
Quarter: 2015Q4

REPORT INFORMATION
  Report Type: Spontaneous
  Country: US (occurrence: US)
  Receive Date: 20151207
  Receipt Date: 20151207
  Transmission Date: 20160305
  Serious: Yes (Life-Threatening, Hospitalization, Other)
  Sender: FDA-Public Use
  Company Number: US-009507513-1512USA002050

PATIENT
  Sex: Male

DRUGS (2)
  1. INTRON A [Suspect]
     Active Substance: INTERFERON ALFA-2B
     Indication: MALIGNANT MELANOMA
     Dosage: UNK
     Dates: end: 201504
  2. INTRON A [Suspect]
     Active Substance: INTERFERON ALFA-2B
     Dosage: EXTREMELY HIGH DOSE
     Dates: start: 2015, end: 2015

REACTIONS (4)
  - Depression [Unknown]
  - Suicidal ideation [Unknown]
  - Insomnia [Unknown]
  - Anxiety [Unknown]

NARRATIVE: CASE EVENT DATE: 2015
